FAERS Safety Report 4738777-8 (Version None)
Quarter: 2005Q3

REPORT INFORMATION
  Report Type: 
  Country: None (occurrence: None)
  Receive Date: 20050808
  Receipt Date: 20050808
  Transmission Date: 20060218
  Serious: Yes (Hospitalization)
  Sender: FDA-Public Use
  Company Number: None

PATIENT
  Age: 44 Year
  Sex: Female
  Weight: 108.8633 kg

DRUGS (1)
  1. PHENTERMINE [Suspect]
     Indication: OBESITY
     Dosage: 1 TAB DAILY B4 BKFST ORAL
     Route: 048
     Dates: start: 20050704, end: 20050708

REACTIONS (3)
  - BREAST PAIN [None]
  - CHEST PAIN [None]
  - ELECTROCARDIOGRAM T WAVE INVERSION [None]
